FAERS Safety Report 18433536 (Version 4)
Quarter: 2021Q2

REPORT INFORMATION
  Report Type: Spontaneous
  Country: US (occurrence: US)
  Receive Date: 20201027
  Receipt Date: 20210429
  Transmission Date: 20210717
  Serious: No
  Sender: FDA-Public Use
  Company Number: US-PFIZER INC-2020413262

PATIENT
  Age: 61 Year
  Sex: Female

DRUGS (2)
  1. IBRANCE [Suspect]
     Active Substance: PALBOCICLIB
     Indication: BREAST CANCER FEMALE
     Dosage: 125 MG, CYCLIC (21 DAYS ON, THEN 7 DAYS OFF Q (EVERY) 28 DAYS)
     Route: 048
     Dates: start: 20200724
  2. IBRANCE [Suspect]
     Active Substance: PALBOCICLIB
     Indication: BREAST CANCER FEMALE
     Dosage: 125 MG, CYCLIC (125 MG ONCE DAILY (QD) X 21 DAYS)
     Route: 048
     Dates: start: 20150915

REACTIONS (6)
  - Poor quality product administered [Unknown]
  - Arthralgia [Not Recovered/Not Resolved]
  - Condition aggravated [Unknown]
  - Product taste abnormal [Unknown]
  - Myalgia [Not Recovered/Not Resolved]
  - Product physical issue [Unknown]
